FAERS Safety Report 5887415-X (Version None)
Quarter: 2008Q3

REPORT INFORMATION
  Report Type: 
  Country: None (occurrence: None)
  Receive Date: 20080918
  Receipt Date: 20031211
  Transmission Date: 20090109
  Serious: No
  Sender: FDA-Public Use
  Company Number: US-BAYER-200831104NA

PATIENT
  Sex: Male

DRUGS (2)
  1. AVELOX [Suspect]
     Indication: LOCALISED INFECTION
     Route: 042
  2. AVELOX [Suspect]
     Route: 048

REACTIONS (2)
  - DIZZINESS [None]
  - NAUSEA [None]
